FAERS Safety Report 6059780-4 (Version None)
Quarter: 2009Q1

REPORT INFORMATION
  Report Type: 
  Country: None (occurrence: None)
  Receive Date: 20090130
  Receipt Date: 20090120
  Transmission Date: 20090719
  Serious: Yes (Other)
  Sender: FDA-Public Use
  Company Number: CZ-ROCHE-609465

PATIENT
  Age: 52 Year
  Sex: Female

DRUGS (3)
  1. BONIVA [Suspect]
     Indication: OSTEOPOROSIS POSTMENOPAUSAL
     Dosage: DOSAGE REGIMEN: 1 DOSE.
     Route: 042
     Dates: start: 20090110, end: 20090110
  2. ROFERON-A [Concomitant]
     Dosage: DOSAGE REGIMEN: 3X WEEK.
     Route: 042
     Dates: start: 20080701
  3. CALTRATE PLUS [Concomitant]

REACTIONS (1)
  - TRANSAMINASES INCREASED [None]
